FAERS Safety Report 5343917-6 (Version None)
Quarter: 2007Q2

REPORT INFORMATION
  Report Type: 
  Country: None (occurrence: None)
  Receive Date: 20070531
  Receipt Date: 20070516
  Transmission Date: 20071010
  Serious: Yes (Other)
  Sender: FDA-Public Use
  Company Number: 2007RR-07652

PATIENT
  Age: 17 Year
  Sex: Female

DRUGS (1)
  1. DOXYCYCLINE HYDROCHLORIDE (DOXYCYCLINE) [Suspect]
     Indication: ACNE
     Dosage: 100 MG, BID, ORAL
     Route: 048

REACTIONS (4)
  - CHEST PAIN [None]
  - DYSPHAGIA [None]
  - OESOPHAGEAL DISORDER [None]
  - OESOPHAGITIS [None]
